FAERS Safety Report 4842829-1 (Version None)
Quarter: 2005Q4

REPORT INFORMATION
  Report Type: 
  Country: None (occurrence: None)
  Receive Date: 20051130
  Receipt Date: 20051117
  Transmission Date: 20060501
  Serious: Yes (Other)
  Sender: FDA-Public Use
  Company Number: 2005158187

PATIENT
  Sex: Female

DRUGS (1)
  1. DEPO-PROVERA [Suspect]
     Indication: UTERINE DISORDER
     Dosage: (1ST INJECTION, MONTHLY)
     Dates: start: 19870101, end: 19870101

REACTIONS (3)
  - BONE DEVELOPMENT ABNORMAL [None]
  - DRUG EXPOSURE DURING PREGNANCY [None]
  - HOMOSEXUALITY [None]
